FAERS Safety Report 9733171 (Version 2)
Quarter: 2014Q1

REPORT INFORMATION
  Report Type: Spontaneous
  Country: US (occurrence: US)
  Receive Date: 20131205
  Receipt Date: 20140115
  Transmission Date: 20141002
  Serious: Yes (Other)
  Sender: FDA-Public Use
  Company Number: US-JNJFOC-20131201370

PATIENT
  Age: 33 Year
  Sex: Female

DRUGS (3)
  1. HUMAN CLOTTABLE PROTEIN/HUMAN THROMBIN [Suspect]
     Indication: PTERYGIUM OPERATION
     Route: 061
  2. RANIBIZUMAB [Interacting]
     Indication: PTERYGIUM OPERATION
     Dosage: (0.5 MG/0.05 ML) SUBCONJUNCTIVAL EITHER 3 DAYS PRIOR TO OR AT THE TIME OF SURGERY.
     Route: 065
  3. OTHER THERAPEUTIC PRODUCTS [Concomitant]
     Indication: PTERYGIUM OPERATION
     Route: 065

REACTIONS (3)
  - Graft complication [Recovered/Resolved]
  - Drug interaction [Recovered/Resolved]
  - Off label use [Unknown]
